FAERS Safety Report 5972560-0 (Version None)
Quarter: 2008Q4

REPORT INFORMATION
  Report Type: 
  Country: None (occurrence: None)
  Receive Date: 20081201
  Receipt Date: 20081118
  Transmission Date: 20090506
  Serious: Yes (Other)
  Sender: FDA-Public Use
  Company Number: B0548104A

PATIENT
  Age: 23 Month
  Sex: Male
  Weight: 13 kg

DRUGS (4)
  1. VENTOLIN [Suspect]
     Indication: BRONCHIOLITIS
     Dosage: 3UNIT PER DAY
     Route: 065
  2. FLUTICASONE PROPIONATE [Suspect]
     Indication: BRONCHIOLITIS
     Dosage: 2UNIT PER DAY
     Route: 065
  3. CELESTENE [Suspect]
     Indication: BRONCHIOLITIS
     Dosage: 1UNIT IN THE MORNING
     Route: 065
  4. PIVALONE [Suspect]
     Indication: BRONCHIOLITIS
     Route: 065

REACTIONS (5)
  - AGGRESSION [None]
  - ANGER [None]
  - ANOREXIA [None]
  - CONVERSION DISORDER [None]
  - VOMITING [None]
